FAERS Safety Report 5971347-2 (Version None)
Quarter: 2008Q4

REPORT INFORMATION
  Report Type: 
  Country: None (occurrence: None)
  Receive Date: 20081128
  Receipt Date: 20080204
  Transmission Date: 20090506
  Serious: No
  Sender: FDA-Public Use
  Company Number: JP-PFIZER INC-2008037485

PATIENT
  Age: 74 Year
  Sex: Male

DRUGS (11)
  1. MIGLITOL TABLET [Suspect]
     Indication: DIABETES MELLITUS
     Dosage: DAILY DOSE:100MG
     Route: 048
     Dates: start: 20071014, end: 20071207
  2. DAONIL [Concomitant]
     Route: 048
     Dates: start: 19890815
  3. LANIRAPID [Concomitant]
     Route: 048
     Dates: start: 19910314
  4. ISOSORBIDE DINITRATE [Concomitant]
     Route: 048
     Dates: start: 19910314
  5. CLARITHROMYCIN [Concomitant]
     Route: 048
     Dates: start: 20031224
  6. ASPIRIN [Concomitant]
     Route: 048
     Dates: start: 20060403
  7. PANALDINE [Concomitant]
     Route: 048
     Dates: start: 20060403
  8. DIART [Concomitant]
     Route: 048
     Dates: start: 20060522
  9. ALLOPURINOL [Concomitant]
     Route: 048
     Dates: start: 20060809
  10. SELBEX [Concomitant]
     Route: 048
     Dates: start: 20070113
  11. CRESTOR [Concomitant]
     Route: 048
     Dates: start: 20070427

REACTIONS (4)
  - ANOREXIA [None]
  - HEPATIC FUNCTION ABNORMAL [None]
  - NAUSEA [None]
  - RASH [None]
